FAERS Safety Report 11889187 (Version 1)
Quarter: 2016Q1

REPORT INFORMATION
  Report Type: Spontaneous
  Country: US (occurrence: None)
  Receive Date: 20160104
  Receipt Date: 20160104
  Transmission Date: 20160526
  Serious: No
  Sender: FDA-Public Use
  Company Number: None

PATIENT
  Age: 19 Year
  Sex: Male
  Weight: 79.38 kg

DRUGS (1)
  1. ZOLPIDEM [Suspect]
     Active Substance: ZOLPIDEM\ZOLPIDEM TARTRATE
     Dosage: NO RELEVANT
     Dates: start: 20151230, end: 20160102

REACTIONS (2)
  - Intercepted drug administration error [None]
  - Drug dispensing error [None]

NARRATIVE: CASE EVENT DATE: 20151230
